FAERS Safety Report 8446487-9 (Version None)
Quarter: 2012Q2

REPORT INFORMATION
  Report Type: 
  Country: None (occurrence: None)
  Receive Date: 20120618
  Receipt Date: 20120416
  Transmission Date: 20120825
  Serious: No
  Sender: FDA-Public Use
  Company Number: US-TEVA-333894USA

PATIENT
  Sex: Female
  Weight: 63.56 kg

DRUGS (3)
  1. ACTIQ [Suspect]
     Indication: NEURALGIA
     Dosage: 200MG QD PRN AND 400MG TID PRN
     Route: 002
     Dates: start: 20040101
  2. PREGABALIN [Concomitant]
     Indication: NEURALGIA
     Route: 048
     Dates: start: 20060101
  3. DILAUDID [Concomitant]
     Indication: NEURALGIA
     Dosage: 16 MILLIGRAM;
     Route: 048
     Dates: start: 20080101

REACTIONS (2)
  - OFF LABEL USE [None]
  - PAIN [None]
